FAERS Safety Report 23106258 (Version 2)
Quarter: 2024Q2

REPORT INFORMATION
  Report Type: Spontaneous
  Country: BR (occurrence: BR)
  Receive Date: 20231025
  Receipt Date: 20240524
  Transmission Date: 20240715
  Serious: Yes (Other)
  Sender: FDA-Public Use
  Company Number: BR-SA-SAC20231024000211

PATIENT
  Age: 7 Year
  Sex: Female

DRUGS (5)
  1. SABRIL [Suspect]
     Active Substance: VIGABATRIN
     Indication: Infantile spasms
     Dosage: 3.5 DF, QD (1 AND A HALF TABLETS IN THE MORNING AND 2 TABLETS AT NIGHT)
     Route: 065
  2. NITRAZEPAM [Concomitant]
     Active Substance: NITRAZEPAM
     Indication: Product used for unknown indication
     Dosage: UNK
     Route: 065
  3. VALPROIC ACID [Concomitant]
     Active Substance: VALPROIC ACID
     Indication: Product used for unknown indication
     Dosage: UNK
     Route: 065
  4. TOPIRAMATE [Concomitant]
     Active Substance: TOPIRAMATE
     Indication: Product used for unknown indication
     Dosage: UNK
     Route: 065
  5. CANNABIDIOL [Concomitant]
     Active Substance: CANNABIDIOL
     Indication: Product used for unknown indication
     Dosage: 12 MG/KG
     Route: 065

REACTIONS (5)
  - Bedridden [Unknown]
  - Seizure [Unknown]
  - Poor quality product administered [Unknown]
  - Drug dependence [Unknown]
  - Wrong technique in product usage process [Unknown]
